FAERS Safety Report 6140680-6 (Version None)
Quarter: 2009Q1

REPORT INFORMATION
  Report Type: 
  Country: None (occurrence: None)
  Receive Date: 20090331
  Receipt Date: 20090331
  Transmission Date: 20090719
  Serious: Yes (Other)
  Sender: FDA-Public Use
  Company Number: None

PATIENT
  Age: 62 Year
  Sex: Female
  Weight: 54.4316 kg

DRUGS (1)
  1. NAPROXEN SODIUM [Suspect]
     Dosage: 550 MG 1 1/2 PRN

REACTIONS (1)
  - DRUG INEFFECTIVE [None]
